FAERS Safety Report 5933855-X (Version None)
Quarter: 2008Q4

REPORT INFORMATION
  Report Type: 
  Country: None (occurrence: None)
  Receive Date: 20081029
  Receipt Date: 20081027
  Transmission Date: 20090506
  Serious: Yes (Other)
  Sender: FDA-Public Use
  Company Number: US-BAYER-200811976BCC

PATIENT
  Age: 55 Year
  Sex: Female
  Weight: 82 kg

DRUGS (6)
  1. ALEVE (CAPLET) [Suspect]
     Indication: DRUG USE FOR UNKNOWN INDICATION
     Dosage: TOTAL DAILY DOSE: 220 MG  UNIT DOSE: 220 MG
     Route: 048
     Dates: start: 20080521, end: 20080521
  2. ASPIRIN [Suspect]
     Indication: DRUG USE FOR UNKNOWN INDICATION
  3. PROGRAF [Concomitant]
  4. XANAX [Concomitant]
  5. BACTRIM [Concomitant]
  6. MULTI-VITAMIN [Concomitant]

REACTIONS (1)
  - RENAL TRANSPLANT [None]
